FAERS Safety Report 10189645 (Version 1)
Quarter: 2014Q2

REPORT INFORMATION
  Report Type: Spontaneous
  Country: US (occurrence: US)
  Receive Date: 20140522
  Receipt Date: 20140522
  Transmission Date: 20141212
  Serious: Yes (Hospitalization, Other)
  Sender: FDA-Public Use
  Company Number: US-SANOFI-AVENTIS-2013SA083539

PATIENT
  Age: 91 Year
  Sex: Male

DRUGS (5)
  1. LANTUS SOLOSTAR [Suspect]
     Indication: TYPE 1 DIABETES MELLITUS
     Dosage: DOSE:15 UNIT(S)
     Route: 058
  2. HUMALOG [Suspect]
     Route: 065
  3. METFORMIN [Suspect]
     Route: 065
  4. VERAPAMIL [Suspect]
     Route: 065
  5. SOLOSTAR [Concomitant]
     Indication: TYPE 1 DIABETES MELLITUS

REACTIONS (5)
  - Blood glucose decreased [Unknown]
  - Blood glucose increased [Unknown]
  - Dizziness [Unknown]
  - Fall [Unknown]
  - Renal disorder [Unknown]
